FAERS Safety Report 7368557-9 (Version None)
Quarter: 2011Q1

REPORT INFORMATION
  Report Type: 
  Country: None (occurrence: None)
  Receive Date: 20110317
  Receipt Date: 20110317
  Transmission Date: 20110831
  Serious: Yes (Other)
  Sender: FDA-Public Use
  Company Number: None

PATIENT
  Sex: Female

DRUGS (1)
  1. FLUTICASONE PROPIONATE [Suspect]
     Indication: RHINITIS ALLERGIC
     Dosage: NASACORT AQ 55 MCG GENERIC FLUTICASONE 1-2 SPRAYS DAILY IN EACH NOSTRIL
     Dates: start: 20100820, end: 20100820

REACTIONS (1)
  - NASAL DISCOMFORT [None]
